FAERS Safety Report 13738687 (Version 1)
Quarter: 2017Q3

REPORT INFORMATION
  Report Type: Report from Study
  Country: US (occurrence: US)
  Receive Date: 20170710
  Receipt Date: 20170710
  Transmission Date: 20171127
  Serious: No
  Sender: FDA-Public Use
  Company Number: US-SAOL THERAPEUTICS-2017SAO00417

PATIENT
  Age: 69 Year
  Sex: Male

DRUGS (4)
  1. MORPHINE [Suspect]
     Active Substance: MORPHINE
     Dosage: 1.502 MG, \DAY
     Route: 037
     Dates: start: 20160112, end: 20160209
  2. COMPOUNDED BACLOFEN [Suspect]
     Active Substance: BACLOFEN
     Dosage: 84.89 ?G, \DAY
     Route: 037
     Dates: start: 20160209
  3. COMPOUNDED BACLOFEN [Suspect]
     Active Substance: BACLOFEN
     Indication: PAIN
     Dosage: 75.10 ?G, \DAY
     Route: 037
     Dates: start: 20160112, end: 20160209
  4. MORPHINE [Suspect]
     Active Substance: MORPHINE
     Dosage: 1.698 MG, \DAY
     Route: 037
     Dates: start: 20160209

REACTIONS (3)
  - Drug ineffective for unapproved indication [Not Recovered/Not Resolved]
  - Off label use [Unknown]
  - Pain [Not Recovered/Not Resolved]

NARRATIVE: CASE EVENT DATE: 20160309
